FAERS Safety Report 10797163 (Version 1)
Quarter: 2015Q1

REPORT INFORMATION
  Report Type: Spontaneous
  Country: US (occurrence: US)
  Receive Date: 20150216
  Receipt Date: 20150216
  Transmission Date: 20150721
  Serious: No
  Sender: FDA-Public Use
  Company Number: US-TEVA-503810USA

PATIENT
  Sex: Female

DRUGS (3)
  1. LEVOTHYROXINE [Concomitant]
     Active Substance: LEVOTHYROXINE
  2. ALENDRONIC ACID [Suspect]
     Active Substance: ALENDRONIC ACID
     Dosage: 10 MILLIGRAM DAILY;
  3. SIMVASTATIN. [Concomitant]
     Active Substance: SIMVASTATIN
     Indication: BLOOD CHOLESTEROL

REACTIONS (2)
  - Arthritis [Unknown]
  - Cartilage injury [Unknown]
